FAERS Safety Report 18031656 (Version 2)
Quarter: 2020Q3

REPORT INFORMATION
  Report Type: Spontaneous
  Country: ES (occurrence: ES)
  Receive Date: 20200716
  Receipt Date: 20200901
  Transmission Date: 20201103
  Serious: Yes (Other)
  Sender: FDA-Public Use
  Company Number: ES-ACCORD-190848

PATIENT
  Age: 79 Year
  Sex: Male
  Weight: 63 kg

DRUGS (4)
  1. FOLINIC ACID [Concomitant]
     Active Substance: LEUCOVORIN
     Dosage: ROUTE OF ADMINISTRATION:INFUSION
     Dates: start: 20200427, end: 20200427
  2. PANITUMUMAB [Concomitant]
     Active Substance: PANITUMUMAB
     Dosage: ROUTE OF ADMINISTRATION:INFUSION
     Dates: start: 20200427, end: 20200427
  3. FLUOROURACIL. [Concomitant]
     Active Substance: FLUOROURACIL
     Dosage: ROUTE OF ADMINISTRATION:48 H CONTINUOUS INFUSION
     Dates: start: 20200427, end: 20200427
  4. OXALIPLATIN. [Suspect]
     Active Substance: OXALIPLATIN
     Indication: COLORECTAL CANCER
     Dosage: 200MG/40ML
     Route: 042
     Dates: start: 20191218

REACTIONS (3)
  - Infusion related reaction [Recovered/Resolved]
  - Pruritus [Recovered/Resolved]
  - Erythema [Recovered/Resolved]

NARRATIVE: CASE EVENT DATE: 20200427
